FAERS Safety Report 14516486 (Version 1)
Quarter: 2018Q1

REPORT INFORMATION
  Report Type: Spontaneous
  Country: US (occurrence: US)
  Receive Date: 20180212
  Receipt Date: 20180212
  Transmission Date: 20180509
  Serious: No
  Sender: FDA-Public Use
  Company Number: PHEH2018US004508

PATIENT
  Age: 66 Year
  Sex: Male

DRUGS (1)
  1. ZORTRESS [Suspect]
     Active Substance: EVEROLIMUS
     Indication: LIVER TRANSPLANT
     Dosage: UNK
     Route: 065

REACTIONS (1)
  - Drug ineffective [Unknown]
